FAERS Safety Report 23201710 (Version 1)
Quarter: 2023Q4

REPORT INFORMATION
  Report Type: Spontaneous
  Country: US (occurrence: None)
  Receive Date: 20231118
  Receipt Date: 20231118
  Transmission Date: 20240109
  Serious: Yes (Disabling)
  Sender: FDA-Public Use
  Company Number: None

PATIENT
  Age: 63 Year
  Sex: Female
  Weight: 54 kg

DRUGS (5)
  1. ARMOUR THYROID [Suspect]
     Active Substance: THYROID, PORCINE
  2. SYNTHROID [Suspect]
     Active Substance: LEVOTHYROXINE SODIUM
  3. CYTOMEL [Suspect]
     Active Substance: LIOTHYRONINE SODIUM
  4. TIROSINT [Suspect]
     Active Substance: LEVOTHYROXINE SODIUM
  5. TIROSINT-SOL [Suspect]
     Active Substance: LEVOTHYROXINE SODIUM

REACTIONS (4)
  - Off label use [None]
  - Thyroid disorder [None]
  - Illness [None]
  - Product prescribing error [None]

NARRATIVE: CASE EVENT DATE: 20050401
